FAERS Safety Report 17769339 (Version 1)
Quarter: 2020Q2

REPORT INFORMATION
  Report Type: Spontaneous
  Country: US (occurrence: US)
  Receive Date: 20200511
  Receipt Date: 20200511
  Transmission Date: 20200714
  Serious: No
  Sender: FDA-Public Use
  Company Number: None

PATIENT
  Age: 45 Year
  Sex: Female

DRUGS (1)
  1. DUPIXENT [Suspect]
     Active Substance: DUPILUMAB
     Indication: ASTHMA
     Route: 058
     Dates: start: 202003

REACTIONS (4)
  - Syringe issue [None]
  - Suspected product tampering [None]
  - Liquid product physical issue [None]
  - Product packaging quantity issue [None]

NARRATIVE: CASE EVENT DATE: 20200508
